FAERS Safety Report 4879627-9 (Version None)
Quarter: 2006Q1

REPORT INFORMATION
  Report Type: 
  Country: None (occurrence: None)
  Receive Date: 20060111
  Receipt Date: 20060105
  Transmission Date: 20060701
  Serious: Yes (Hospitalization)
  Sender: FDA-Public Use
  Company Number: 2006BI000240

PATIENT
  Age: 47 Year
  Sex: Female

DRUGS (2)
  1. AVONEX [Suspect]
     Indication: MULTIPLE SCLEROSIS
     Dosage: 30 UG; QW; IM
     Route: 030
     Dates: start: 20050201
  2. JODHYROX MEDICATION (NOS) [Concomitant]

REACTIONS (4)
  - ALOPECIA [None]
  - GAIT DISTURBANCE [None]
  - HYPERHIDROSIS [None]
  - ULNA FRACTURE [None]
